FAERS Safety Report 7541119-6 (Version None)
Quarter: 2011Q2

REPORT INFORMATION
  Report Type: 
  Country: None (occurrence: None)
  Receive Date: 20110610
  Receipt Date: 20110530
  Transmission Date: 20111010
  Serious: Yes (Disabling, Other)
  Sender: FDA-Public Use
  Company Number: FR-ALLERGAN-1107715US

PATIENT
  Age: 75 Year
  Sex: Male

DRUGS (3)
  1. ALFUZOSIN HCL [Suspect]
     Indication: PROSTATITIS
     Dosage: 10 MG, QD
     Route: 048
     Dates: start: 20100910
  2. TROSPIUM CHLORIDE [Suspect]
     Indication: URINARY INCONTINENCE
     Dosage: 20 MG, QD
     Route: 048
     Dates: start: 20100910
  3. VITAMIN B1 TAB [Suspect]
     Indication: ALCOHOLISM
     Dosage: 2 DF, BID
     Route: 048
     Dates: start: 20110307

REACTIONS (7)
  - BLINDNESS [None]
  - HEADACHE [None]
  - EPISTAXIS [None]
  - DYSPNOEA [None]
  - OEDEMA PERIPHERAL [None]
  - HYPERTENSION [None]
  - ARRHYTHMIA [None]
